FAERS Safety Report 7473617-8 (Version None)
Quarter: 2011Q1

REPORT INFORMATION
  Report Type: 
  Country: None (occurrence: None)
  Receive Date: 20110302
  Receipt Date: 20100820
  Transmission Date: 20110831
  Serious: Yes (Death)
  Sender: FDA-Public Use
  Company Number: 163-21880-10041985

PATIENT
  Age: 73 Year
  Sex: Female

DRUGS (1)
  1. REVLIMID [Suspect]
     Indication: MULTIPLE MYELOMA
     Dosage: 5 MG, DAILY FOR 21 DAYS FOLLOWED BY 7 DAYS OFF, PO
     Route: 048
     Dates: start: 20091224, end: 20100404

REACTIONS (2)
  - BREAST CANCER FEMALE [None]
  - HEPATIC CIRRHOSIS [None]
